FAERS Safety Report 7829817-8 (Version None)
Quarter: 2011Q4

REPORT INFORMATION
  Report Type: 
  Country: None (occurrence: None)
  Receive Date: 20111021
  Receipt Date: 20111011
  Transmission Date: 20120403
  Serious: Yes (Hospitalization)
  Sender: FDA-Public Use
  Company Number: US-JNJFOC-20111005098

PATIENT
  Sex: Male

DRUGS (8)
  1. INVEGA SUSTENNA [Suspect]
     Route: 030
     Dates: start: 20110401, end: 20110401
  2. AMLODIPINE [Concomitant]
     Indication: HYPERTENSION
     Route: 048
  3. FERROUS SULFATE TAB [Concomitant]
     Indication: MEDICAL DIET
     Route: 048
  4. INVEGA SUSTENNA [Suspect]
     Route: 030
     Dates: start: 20101101, end: 20110401
  5. ALLOPURINOL [Concomitant]
     Indication: GOUT
     Route: 048
  6. COLCRYS [Concomitant]
     Indication: GOUT
     Route: 048
  7. FOLIC ACID [Concomitant]
     Indication: MEDICAL DIET
     Route: 048
  8. INVEGA SUSTENNA [Suspect]
     Indication: PSYCHOTIC DISORDER
     Route: 030
     Dates: start: 20110401

REACTIONS (5)
  - PSYCHOTIC DISORDER [None]
  - GOUT [None]
  - INSOMNIA [None]
  - WEIGHT DECREASED [None]
  - INAPPROPRIATE SCHEDULE OF DRUG ADMINISTRATION [None]
